FAERS Safety Report 16537885 (Version 1)
Quarter: 2019Q3

REPORT INFORMATION
  Report Type: Spontaneous
  Country: NO (occurrence: NO)
  Receive Date: 20190708
  Receipt Date: 20190708
  Transmission Date: 20191004
  Serious: Yes (Hospitalization, Other)
  Sender: FDA-Public Use
  Company Number: NO-SA-2019SA177138

PATIENT
  Age: 48 Year
  Sex: Female

DRUGS (7)
  1. CETIRIZIN SANDOZ [Concomitant]
     Dosage: 10 MG X 1 TO 2RECEIVED BECAUSE OF TREATMENT WITH LEMTRADA
     Route: 048
  2. ZOVIRAX [Concomitant]
     Active Substance: ACYCLOVIR
     Indication: ANTIVIRAL PROPHYLAXIS
     Dosage: 200 MG BID RECEIVED BECAUSE OF TREATEMENT WITH LEMTRADA.
     Route: 048
  3. LEMTRADA [Suspect]
     Active Substance: ALEMTUZUMAB
     Indication: MULTIPLE SCLEROSIS
     Route: 042
  4. SOLU-MEDROL [Concomitant]
     Active Substance: METHYLPREDNISOLONE SODIUM SUCCINATE
     Indication: MULTIPLE SCLEROSIS
     Dosage: 1 G QD RECEIVED BECAUSE OF TREATEMENT WITH LEMTRADA.
     Route: 042
  5. AFIPRAN [Concomitant]
     Active Substance: METOCLOPRAMIDE HYDROCHLORIDE
     Dosage: 10 MG X 1 TO 2RECEIVED BECAUSE OF TREATMENT WITH LEMTRADA
     Route: 048
  6. SOMAC [Concomitant]
     Active Substance: PANTOPRAZOLE SODIUM
     Dosage: 40 MG QDRECEIVED BECAUSE OF TREATEMENT WITH LEMTRADA.
     Route: 048
  7. PARACET [Concomitant]
     Active Substance: ACETAMINOPHEN
     Dosage: 1 G QDRECEIVED BECAUSE OF TREATEMENT WITH LEMTRADA
     Route: 048

REACTIONS (7)
  - Agranulocytosis [Recovering/Resolving]
  - Autoimmune haemolytic anaemia [Recovering/Resolving]
  - Thrombocytopenia [Recovering/Resolving]
  - Skin exfoliation [Recovered/Resolved]
  - Oral herpes [Recovered/Resolved]
  - Hypothyroidism [Recovering/Resolving]
  - Autoimmune thyroiditis [Recovered/Resolved with Sequelae]
